FAERS Safety Report 19682387 (Version 1)
Quarter: 2021Q3

REPORT INFORMATION
  Report Type: Report from Study
  Country: US (occurrence: US)
  Receive Date: 20210810
  Receipt Date: 20210810
  Transmission Date: 20211014
  Serious: Yes (Other)
  Sender: FDA-Public Use
  Company Number: US-SUNOVION-2018SUN005156

PATIENT
  Sex: Female

DRUGS (1)
  1. LATUDA [Suspect]
     Active Substance: LURASIDONE HYDROCHLORIDE
     Dosage: 20 MG
     Route: 048

REACTIONS (9)
  - Urinary retention [Unknown]
  - Muscle twitching [Unknown]
  - Abdominal pain [Unknown]
  - Erythema [Unknown]
  - Nephrolithiasis [Unknown]
  - Hallucination [Unknown]
  - Mood swings [Unknown]
  - Rash [Unknown]
  - Hypertensive crisis [Unknown]
